FAERS Safety Report 4906749-6 (Version None)
Quarter: 2006Q1

REPORT INFORMATION
  Report Type: 
  Country: None (occurrence: None)
  Receive Date: 20060209
  Receipt Date: 20060130
  Transmission Date: 20060701
  Serious: Yes (Death, Hospitalization)
  Sender: FDA-Public Use
  Company Number: DE-ROCHE-434137

PATIENT
  Age: 83 Year
  Sex: Female
  Weight: 74 kg

DRUGS (14)
  1. CEFTRIAXONE SODIUM [Suspect]
     Route: 042
     Dates: start: 20040404, end: 20040409
  2. ENOXAPARIN SODIUM [Suspect]
     Indication: DRUG USE FOR UNKNOWN INDICATION
     Dosage: FREQUENCY REPORTED AS SINGLE, INJECTION
     Route: 058
     Dates: start: 20040401, end: 20040401
  3. TIROFIBAN [Suspect]
     Indication: DRUG USE FOR UNKNOWN INDICATION
     Dosage: ROUTE REPORTED AS INTREVANOUS BOLUS
     Route: 042
     Dates: start: 20040401, end: 20040401
  4. TIROFIBAN [Suspect]
     Route: 042
     Dates: start: 20040401, end: 20040402
  5. ACETYLSALICYLIC ACID SRT [Concomitant]
  6. CLOPIDOGREL [Concomitant]
  7. BISOPROLOL [Concomitant]
  8. VALSARTAN [Concomitant]
  9. TORSEMIDE [Concomitant]
  10. FLUTICASONE/SALMETEROL [Concomitant]
  11. ATORVASTATIN CALCIUM [Concomitant]
  12. ESOMEPRAZOLE [Concomitant]
  13. METFORMIN HYDROCHLORIDE [Concomitant]
  14. GLIBENCLAMIDE [Concomitant]

REACTIONS (12)
  - CARDIAC FAILURE ACUTE [None]
  - CARDIAC FAILURE CONGESTIVE [None]
  - CARDIOMYOPATHY [None]
  - CONDITION AGGRAVATED [None]
  - DEHYDRATION [None]
  - DIARRHOEA [None]
  - GASTROINTESTINAL INFECTION [None]
  - MYOCARDIAL INFARCTION [None]
  - MYOCARDIAL ISCHAEMIA [None]
  - RENAL FAILURE ACUTE [None]
  - RIGHT VENTRICULAR FAILURE [None]
  - VENTRICULAR DYSFUNCTION [None]
